FAERS Safety Report 24899335 (Version 1)
Quarter: 2025Q1

REPORT INFORMATION
  Report Type: Spontaneous
  Country: US (occurrence: None)
  Receive Date: 20250128
  Receipt Date: 20250128
  Transmission Date: 20250409
  Serious: No
  Sender: FDA-CTU
  Company Number: None

PATIENT
  Age: 59 Year
  Sex: Female
  Weight: 70.2 kg

DRUGS (6)
  1. AMIVANTAMAB-VMJW [Suspect]
     Active Substance: AMIVANTAMAB-VMJW
     Indication: Lung adenocarcinoma
     Dosage: OTHER FREQUENCY : EVERY 2 WEEKS;?
     Route: 041
     Dates: start: 20241217
  2. DEXAMETHASONE [Concomitant]
     Active Substance: DEXAMETHASONE
  3. ACETAMINOPHEN [Concomitant]
     Active Substance: ACETAMINOPHEN
  4. DIPHENHYDRAMINE [Concomitant]
     Active Substance: DIPHENHYDRAMINE
  5. FAMOTIDINE [Concomitant]
     Active Substance: FAMOTIDINE
  6. ONDANSETRON [Concomitant]
     Active Substance: ONDANSETRON

REACTIONS (5)
  - Cough [None]
  - Flushing [None]
  - Flushing [None]
  - Infusion related reaction [None]
  - Erythema [None]

NARRATIVE: CASE EVENT DATE: 20241217
